FAERS Safety Report 5169344-2 (Version None)
Quarter: 2006Q4

REPORT INFORMATION
  Report Type: 
  Country: None (occurrence: None)
  Receive Date: 20061201
  Receipt Date: 20061124
  Transmission Date: 20070319
  Serious: Yes (Other)
  Sender: FDA-Public Use
  Company Number: HQWYE428127NOV06

PATIENT
  Age: 50 Year
  Sex: Female

DRUGS (1)
  1. LEVONORGESTREL + ETHINYL ESTRADIOL [Suspect]
     Route: 048

REACTIONS (2)
  - EMBOLIC PNEUMONIA [None]
  - PULMONARY EMBOLISM [None]
